FAERS Safety Report 6892280-8 (Version None)
Quarter: 2010Q3

REPORT INFORMATION
  Report Type: 
  Country: None (occurrence: None)
  Receive Date: 20100731
  Receipt Date: 20080403
  Transmission Date: 20110219
  Serious: Yes (Other)
  Sender: FDA-Public Use
  Company Number: US-PFIZER INC-2008023575

PATIENT
  Sex: Female
  Weight: 47.727 kg

DRUGS (4)
  1. FLAGYL I.V. [Suspect]
     Indication: INFECTION PROPHYLAXIS
     Route: 042
     Dates: start: 20080306, end: 20080310
  2. FLAGYL I.V. [Suspect]
     Route: 042
  3. MORPHINE [Concomitant]
  4. DEMEROL [Concomitant]

REACTIONS (2)
  - HYPOAESTHESIA [None]
  - NEUROPATHY PERIPHERAL [None]
